FAERS Safety Report 12526836 (Version 1)
Quarter: 2016Q3

REPORT INFORMATION
  Report Type: Spontaneous
  Country: None (occurrence: None)
  Receive Date: 20160701
  Receipt Date: 20160701
  Transmission Date: 20161109
  Serious: Yes (Life-Threatening)
  Sender: FDA-Public Use
  Company Number: None

PATIENT
  Age: 57 Year
  Sex: Male
  Weight: 76.66 kg

DRUGS (3)
  1. PENMETREXED [Concomitant]
  2. BEVACIZUMAB [Concomitant]
     Active Substance: BEVACIZUMAB
  3. CARBOPLATIN. [Suspect]
     Active Substance: CARBOPLATIN
     Indication: NON-SMALL CELL LUNG CANCER
     Route: 040

REACTIONS (4)
  - Dyspnoea [None]
  - Diaphragmatic disorder [None]
  - Chills [None]
  - Flushing [None]

NARRATIVE: CASE EVENT DATE: 20160629
